FAERS Safety Report 22186385 (Version 1)
Quarter: 2023Q2

REPORT INFORMATION
  Report Type: Spontaneous
  Country: GB (occurrence: None)
  Receive Date: 20230407
  Receipt Date: 20230407
  Transmission Date: 20230721
  Serious: Yes (Other)
  Sender: FDA-Public Use
  Company Number: 2023A075423

PATIENT
  Age: 73 Year
  Sex: Male
  Weight: 120 kg

DRUGS (31)
  1. DAPAGLIFLOZIN [Suspect]
     Active Substance: DAPAGLIFLOZIN
     Dosage: 10
     Route: 048
     Dates: start: 20221006, end: 20230314
  2. UMECLIDINIUM BROMIDE\VILANTEROL TRIFENATATE [Concomitant]
     Active Substance: UMECLIDINIUM BROMIDE\VILANTEROL TRIFENATATE
     Indication: Chronic obstructive pulmonary disease
     Dosage: 1
     Route: 055
     Dates: start: 20221006
  3. ATORVASTATIN [Concomitant]
     Active Substance: ATORVASTATIN
     Dosage: 1- MORNING
     Dates: start: 20220826
  4. BISOPROLOL [Concomitant]
     Active Substance: BISOPROLOL
     Dosage: 1
     Dates: start: 20220826
  5. BUPRENORPHINE [Concomitant]
     Active Substance: BUPRENORPHINE
     Dosage: 1
     Dates: start: 20220826, end: 20230314
  6. CLOTRIMAZOLE [Concomitant]
     Active Substance: CLOTRIMAZOLE
     Dosage: 1
     Dates: start: 20230314
  7. DIAZEPAM [Concomitant]
     Active Substance: DIAZEPAM
     Dosage: 2-4MG THREE TIMES A DAY AS REQUIRED
     Dates: start: 20220826
  8. LANOLIN\LIGHT MINERAL OIL\PARAFFIN [Concomitant]
     Active Substance: LANOLIN\LIGHT MINERAL OIL\PARAFFIN
     Dosage: 1
     Route: 062
     Dates: start: 20220826
  9. EPLERENONE [Concomitant]
     Active Substance: EPLERENONE
     Dosage: 1
     Dates: start: 20220826
  10. FINASTERIDE [Concomitant]
     Active Substance: FINASTERIDE
     Dosage: 1
     Dates: start: 20220826
  11. FLUCONAZOLE [Concomitant]
     Active Substance: FLUCONAZOLE
     Dosage: 2
     Dates: start: 20230316
  12. FOLIC ACID [Concomitant]
     Active Substance: FOLIC ACID
     Dosage: 1
     Dates: start: 20220826
  13. FUROSEMIDE [Concomitant]
     Active Substance: FUROSEMIDE
     Dosage: 1- MORNING
     Dates: start: 20220826, end: 20230111
  14. GLYCERIN [Concomitant]
     Active Substance: GLYCERIN
     Dosage: INSERT ONE AS REQUIRED
     Dates: start: 20230125, end: 20230206
  15. LATANOPROST [Concomitant]
     Active Substance: LATANOPROST
     Dosage: 1, LEFT EYE AT NIGHT
     Route: 031
     Dates: start: 20220826
  16. POLYETHYLENE GLYCOL 3350\POTASSIUM CHLORIDE\SODIUM BICARBONATE\SODIUM [Concomitant]
     Active Substance: POLYETHYLENE GLYCOL 3350\POTASSIUM CHLORIDE\SODIUM BICARBONATE\SODIUM CHLORIDE
     Dosage: USE AS DIRECTED
     Dates: start: 20230206, end: 20230207
  17. POLYETHYLENE GLYCOLS [Concomitant]
     Active Substance: POLYETHYLENE GLYCOLS
     Dosage: USE AS DIRECTED
     Dates: start: 20220826
  18. METFORMIN [Concomitant]
     Active Substance: METFORMIN HYDROCHLORIDE
     Dosage: 2
     Route: 048
     Dates: start: 20220826
  19. NITROFURANTOIN [Concomitant]
     Active Substance: NITROFURANTOIN
     Dosage: 1
     Dates: start: 20230213, end: 20230220
  20. INSULIN ASPART [Concomitant]
     Active Substance: INSULIN ASPART
     Dates: start: 20220826
  21. OMEPRAZOLE [Concomitant]
     Active Substance: OMEPRAZOLE
     Dosage: 1
     Dates: start: 20220826
  22. ACETAMINOPHEN [Concomitant]
     Active Substance: ACETAMINOPHEN
     Dosage: TAKE 1 OR 2 4 TIMES/DAY
     Dates: start: 20220826
  23. PREGABALIN [Concomitant]
     Active Substance: PREGABALIN
     Dosage: TAKE ONE IN THE MORNING , ONE AT TEA T...
     Route: 048
     Dates: start: 20220826
  24. PROCHLORPERAZINE [Concomitant]
     Active Substance: PROCHLORPERAZINE
     Dosage: MAX ONE THREE TIMES DAILY CAN BE TAKEN
     Dates: start: 20220826
  25. ALBUTEROL [Concomitant]
     Active Substance: ALBUTEROL
     Indication: Dyspnoea
     Dosage: 2 AS REQUIRED
     Route: 055
     Dates: start: 20230203
  26. ALBUTEROL [Concomitant]
     Active Substance: ALBUTEROL
     Indication: Dyspnoea
     Dosage: 2 AS REQUIRED
     Route: 055
     Dates: start: 20220826, end: 20230203
  27. SENNA [Concomitant]
     Active Substance: SENNA LEAF\SENNOSIDES\SENNOSIDES A AND B
     Dosage: 2
     Dates: start: 20220826
  28. SITAGLIPTIN [Concomitant]
     Active Substance: SITAGLIPTIN
     Dosage: 1
     Dates: start: 20220826
  29. TAMSULOSIN HYDROCHLORIDE [Concomitant]
     Active Substance: TAMSULOSIN HYDROCHLORIDE
     Dosage: 1
     Dates: start: 20220826
  30. UNSPECIFIED INGREDIENT [Concomitant]
     Active Substance: UNSPECIFIED INGREDIENT
     Dosage: 2
     Route: 031
     Dates: start: 20221201
  31. WARFARIN SODIUM [Concomitant]
     Active Substance: WARFARIN SODIUM
     Dosage: 1, AS DIRECTED BY CLINIC
     Dates: start: 20220826

REACTIONS (2)
  - Candida infection [Unknown]
  - Cystitis [Recovering/Resolving]
